FAERS Safety Report 14217780 (Version 1)
Quarter: 2017Q4

REPORT INFORMATION
  Report Type: Spontaneous
  Country: US (occurrence: US)
  Receive Date: 20171123
  Receipt Date: 20171123
  Transmission Date: 20180321
  Serious: No
  Sender: FDA-Public Use
  Company Number: US-BEH-2017085070

PATIENT
  Sex: Female
  Weight: 83.45 kg

DRUGS (1)
  1. HIZENTRA [Suspect]
     Active Substance: HUMAN IMMUNOGLOBULIN G
     Indication: SELECTIVE IGG SUBCLASS DEFICIENCY
     Dosage: 12 G, QW
     Route: 058
     Dates: start: 20170110

REACTIONS (2)
  - Peripheral swelling [Unknown]
  - Diarrhoea [Unknown]
